FAERS Safety Report 17766598 (Version 2)
Quarter: 2020Q2

REPORT INFORMATION
  Report Type: Spontaneous
  Country: US (occurrence: US)
  Receive Date: 20200511
  Receipt Date: 20200608
  Transmission Date: 20200714
  Serious: No
  Sender: FDA-Public Use
  Company Number: US-VERTEX PHARMACEUTICALS-2020-010315

PATIENT
  Age: 40 Year
  Sex: Male
  Weight: 59 kg

DRUGS (5)
  1. PULMOZYME [Concomitant]
     Active Substance: DORNASE ALFA
  2. TRIKAFTA [Suspect]
     Active Substance: ELEXACAFTOR\IVACAFTOR\TEZACAFTOR
     Indication: CYSTIC FIBROSIS
     Dosage: 2 TAB(100 MG ELEXACAFTOR/ 50 MG TEZACAFTOR/ 75 MG IVACAFTOR) AM, 1 TAB (150MG IVACAFTOR) PM
     Route: 048
     Dates: start: 20200417
  3. ZENPEP [Suspect]
     Active Substance: PANCRELIPASE AMYLASE\PANCRELIPASE LIPASE\PANCRELIPASE PROTEASE
     Indication: PRODUCT USED FOR UNKNOWN INDICATION
     Dosage: 3/MEALS AND 1-2 PER/SNAKS
     Route: 065
  4. ALBUTEROL [SALBUTAMOL] [Concomitant]
     Active Substance: ALBUTEROL
  5. BETHKIS [Concomitant]
     Active Substance: TOBRAMYCIN

REACTIONS (2)
  - Headache [Recovered/Resolved]
  - Weight increased [Not Recovered/Not Resolved]

NARRATIVE: CASE EVENT DATE: 202004
